FAERS Safety Report 8116766-3 (Version None)
Quarter: 2012Q1

REPORT INFORMATION
  Report Type: 
  Country: None (occurrence: None)
  Receive Date: 20120206
  Receipt Date: 20120127
  Transmission Date: 20120608
  Serious: Yes (Hospitalization, Disabling)
  Sender: FDA-Public Use
  Company Number: US-BAYER-2011-037282

PATIENT
  Age: 34 Year
  Sex: Female
  Weight: 109 kg

DRUGS (9)
  1. PHENERGAN [Concomitant]
  2. ALBUTEROL [Concomitant]
  3. PERCOCET [Concomitant]
     Dosage: UNK
     Dates: start: 20090505, end: 20090526
  4. ANTIBIOTICS [Concomitant]
     Dosage: UNK UNK, PRN
     Dates: start: 20020101
  5. FIORINAL [Concomitant]
  6. YAZ [Suspect]
     Indication: PRODUCT USED FOR UNKNOWN INDICATION
     Dosage: UNK
     Dates: start: 20090101, end: 20090501
  7. BLOOD PRESSURE MEDICATIONS [Concomitant]
  8. MIGRAINE MEDICATIONS [Concomitant]
  9. IBUPROFEN [Concomitant]
     Dosage: UNK UNK, PRN

REACTIONS (8)
  - CHOLECYSTITIS CHRONIC [None]
  - ABDOMINAL PAIN [None]
  - PAIN [None]
  - CHOLELITHIASIS [None]
  - ANHEDONIA [None]
  - NEPHROLITHIASIS [None]
  - ANXIETY [None]
  - GALLBLADDER DISORDER [None]
